FAERS Safety Report 7829752-5 (Version None)
Quarter: 2011Q4

REPORT INFORMATION
  Report Type: 
  Country: None (occurrence: None)
  Receive Date: 20111020
  Receipt Date: 20111020
  Transmission Date: 20120403
  Serious: Yes (Other)
  Sender: FDA-Public Use
  Company Number: None

PATIENT
  Sex: Female
  Weight: 117.7 kg

DRUGS (3)
  1. VANCOMYCIN [Suspect]
     Indication: ARTHRITIS INFECTIVE
     Dosage: VANCOMYCIN 1750MG Q12 IV
     Route: 042
     Dates: start: 20110722, end: 20110805
  2. ZYVOX [Suspect]
     Dosage: IVANZ 1 GM Q12 IV
     Route: 042
     Dates: start: 20110722, end: 20110805
  3. VANCOMYCIN HCL [Suspect]

REACTIONS (1)
  - RASH GENERALISED [None]
